FAERS Safety Report 6198706-X (Version None)
Quarter: 2009Q2

REPORT INFORMATION
  Report Type: 
  Country: None (occurrence: None)
  Receive Date: 20090521
  Receipt Date: 20090514
  Transmission Date: 20091009
  Serious: Yes (Other)
  Sender: FDA-Public Use
  Company Number: PHHY2009JP10830

PATIENT
  Sex: Male

DRUGS (5)
  1. DIOVAN T30230+TAB+HY [Suspect]
     Dosage: 80 MG, QD
     Route: 048
     Dates: start: 20080301, end: 20080703
  2. CARDENALIN [Concomitant]
     Indication: HYPERTENSION
     Dosage: 2 MG
     Route: 048
     Dates: start: 20071126
  3. EUGLUCON [Concomitant]
     Dosage: 1.25 MG
     Route: 048
     Dates: start: 20071221
  4. EUGLUCON [Concomitant]
     Dosage: 2.5 MG
     Route: 048
     Dates: start: 20071221
  5. RIZE [Concomitant]
     Dosage: 5 MG
     Route: 048
     Dates: start: 20071126

REACTIONS (2)
  - HAEMOLYSIS [None]
  - HYPERKALAEMIA [None]
